FAERS Safety Report 9069724 (Version 1)
Quarter: 2013Q1

REPORT INFORMATION
  Report Type: Report from Study
  Country: US (occurrence: US)
  Receive Date: 20130131
  Receipt Date: 20130131
  Transmission Date: 20140127
  Serious: No
  Sender: FDA-Public Use
  Company Number: US-ABBOTT-12P-163-1005532-00

PATIENT
  Age: 61 Year
  Sex: Female

DRUGS (2)
  1. HUMIRA [Suspect]
     Dates: start: 20121025
  2. HUMIRA [Suspect]
     Dates: start: 20121101

REACTIONS (2)
  - Incorrect dose administered [Recovering/Resolving]
  - Psoriasis [Recovering/Resolving]
